FAERS Safety Report 26076205 (Version 2)
Quarter: 2025Q4

REPORT INFORMATION
  Report Type: Spontaneous
  Country: US (occurrence: US)
  Receive Date: 20251121
  Receipt Date: 20251202
  Transmission Date: 20260118
  Serious: Yes (Life-Threatening, Hospitalization, Other)
  Sender: PFIZER
  Company Number: US-PFIZER INC-PV202500135619

PATIENT
  Age: 55 Year
  Sex: Female

DRUGS (18)
  1. DOXORUBICIN HYDROCHLORIDE [Suspect]
     Active Substance: DOXORUBICIN HYDROCHLORIDE
     Indication: B-cell lymphoma
     Dosage: UNK, CYCLIC
  2. DOXORUBICIN HYDROCHLORIDE [Suspect]
     Active Substance: DOXORUBICIN HYDROCHLORIDE
     Dosage: SECOND R-EPOCH CYCLE, WITH 50% DOSE REDUCTION
  3. DOXORUBICIN HYDROCHLORIDE [Suspect]
     Active Substance: DOXORUBICIN HYDROCHLORIDE
     Dosage: THIRD R-EPOCH CYCLE
  4. RITUXIMAB [Suspect]
     Active Substance: RITUXIMAB
     Indication: B-cell lymphoma
     Dosage: UNK, CYCLIC
  5. RITUXIMAB [Suspect]
     Active Substance: RITUXIMAB
     Dosage: UNK, CYCLIC (SECOND R-EPOCH CYCLE, WITH 50% DOSE REDUCTION)
  6. RITUXIMAB [Suspect]
     Active Substance: RITUXIMAB
     Dosage: UNK, CYCLIC (THIRD R-EPOCH CYCLE)
  7. VINCRISTINE SULFATE [Suspect]
     Active Substance: VINCRISTINE SULFATE
     Indication: B-cell lymphoma
     Dosage: UNK, CYCLIC
  8. VINCRISTINE SULFATE [Suspect]
     Active Substance: VINCRISTINE SULFATE
     Dosage: SECOND R-EPOCH CYCLE, WITH 50% DOSE REDUCTION
  9. VINCRISTINE SULFATE [Suspect]
     Active Substance: VINCRISTINE SULFATE
     Dosage: THIRD R-EPOCH CYCLE
  10. ETOPOSIDE [Suspect]
     Active Substance: ETOPOSIDE
     Indication: B-cell lymphoma
     Dosage: UNK, CYCLIC
  11. ETOPOSIDE [Suspect]
     Active Substance: ETOPOSIDE
     Dosage: SECOND R-EPOCH CYCLE, WITH 50% DOSE REDUCTION
  12. ETOPOSIDE [Suspect]
     Active Substance: ETOPOSIDE
     Dosage: THIRD R-EPOCH CYCLE
  13. PREDNISONE [Suspect]
     Active Substance: PREDNISONE
     Indication: B-cell lymphoma
     Dosage: UNK, CYCLIC
  14. PREDNISONE [Suspect]
     Active Substance: PREDNISONE
     Dosage: SECOND R-EPOCH CYCLE, WITH 50% DOSE REDUCTION
  15. PREDNISONE [Suspect]
     Active Substance: PREDNISONE
     Dosage: THIRD R-EPOCH CYCLE
  16. CYCLOPHOSPHAMIDE [Suspect]
     Active Substance: CYCLOPHOSPHAMIDE
     Indication: B-cell lymphoma
     Dosage: UNK, CYCLIC
  17. CYCLOPHOSPHAMIDE [Suspect]
     Active Substance: CYCLOPHOSPHAMIDE
     Dosage: SECOND R-EPOCH CYCLE, WITH 50% DOSE REDUCTION
  18. CYCLOPHOSPHAMIDE [Suspect]
     Active Substance: CYCLOPHOSPHAMIDE
     Dosage: THIRD R-EPOCH CYCLE

REACTIONS (5)
  - Lung consolidation [Unknown]
  - Ileus [Unknown]
  - Clostridium difficile infection [Unknown]
  - Deep vein thrombosis [Unknown]
  - General physical health deterioration [Unknown]
